APPROVED DRUG PRODUCT: DILTIAZEM HYDROCHLORIDE
Active Ingredient: DILTIAZEM HYDROCHLORIDE
Strength: 240MG
Dosage Form/Route: TABLET, EXTENDED RELEASE;ORAL
Application: A216439 | Product #003 | TE Code: AB
Applicant: AMTA LABS LTD
Approved: Mar 7, 2023 | RLD: No | RS: No | Type: RX